FAERS Safety Report 24794760 (Version 1)
Quarter: 2024Q4

REPORT INFORMATION
  Report Type: Spontaneous
  Country: US (occurrence: US)
  Receive Date: 20241231
  Receipt Date: 20241231
  Transmission Date: 20250114
  Serious: Yes (Other)
  Sender: AVADEL CNS PHARMACEUTICALS, LLC
  Company Number: US-AVADEL CNS PHARMACEUTICALS, LLC-2024AVA02507

PATIENT
  Sex: Female
  Weight: 67.574 kg

DRUGS (14)
  1. LUMRYZ [Suspect]
     Active Substance: SODIUM OXYBATE
     Indication: Narcolepsy
     Dosage: 4.5 G, ONCE NIGHTLY
     Route: 048
     Dates: start: 20241126, end: 2024
  2. LUMRYZ [Suspect]
     Active Substance: SODIUM OXYBATE
     Indication: Cataplexy
  3. LUMRYZ [Suspect]
     Active Substance: SODIUM OXYBATE
     Indication: Narcolepsy
     Dosage: 6 G, ONCE NIGHTLY
     Route: 048
     Dates: start: 2024, end: 20241210
  4. LUMRYZ [Suspect]
     Active Substance: SODIUM OXYBATE
     Indication: Cataplexy
  5. LUMRYZ [Suspect]
     Active Substance: SODIUM OXYBATE
     Indication: Narcolepsy
     Dosage: 7.5 G, ONCE NIGHTLY
     Route: 048
     Dates: start: 20241211, end: 20241215
  6. LUMRYZ [Suspect]
     Active Substance: SODIUM OXYBATE
     Indication: Cataplexy
  7. TRAZODONE [Concomitant]
     Active Substance: TRAZODONE HYDROCHLORIDE
     Dosage: UNK, AS NEEDED
  8. VITAMIN D NOS [Concomitant]
     Active Substance: CHOLECALCIFEROL\ERGOCALCIFEROL
  9. MCT OIL [MEDIUM-CHAIN TRIGLYCERIDES] [Concomitant]
  10. RITALIN [Concomitant]
     Active Substance: METHYLPHENIDATE HYDROCHLORIDE
     Dosage: 5 MG
  11. SUNOSI [Concomitant]
     Active Substance: SOLRIAMFETOL
     Dosage: 75 MG
  12. HERBALS\TURMERIC [Concomitant]
     Active Substance: HERBALS\TURMERIC
     Dosage: UNK, 3X/DAY (POWDER)
  13. LICORICE [Concomitant]
     Active Substance: LICORICE
     Dosage: UNK, 2X/DAY
  14. BIOMEGA [Concomitant]
     Active Substance: CAPSAICIN
     Dosage: 1 DOSAGE FORM, 1X/DAY

REACTIONS (20)
  - Loss of consciousness [Unknown]
  - Feeling abnormal [Unknown]
  - Thinking abnormal [Unknown]
  - Fibromyalgia [Unknown]
  - Asthenia [Unknown]
  - Discomfort [Unknown]
  - Brain fog [Unknown]
  - Movement disorder [Unknown]
  - Aphasia [Unknown]
  - Crying [Unknown]
  - Disturbance in attention [Unknown]
  - Somnolence [Unknown]
  - Confusional state [Unknown]
  - Anxiety [Unknown]
  - Disorientation [Unknown]
  - Nausea [Unknown]
  - Vision blurred [Unknown]
  - Panic attack [Unknown]
  - Memory impairment [Unknown]
  - Drug ineffective [Recovered/Resolved]

NARRATIVE: CASE EVENT DATE: 20240101
